FAERS Safety Report 18164521 (Version 1)
Quarter: 2020Q3

REPORT INFORMATION
  Report Type: Spontaneous
  Country: CN (occurrence: CN)
  Receive Date: 20200818
  Receipt Date: 20200818
  Transmission Date: 20201103
  Serious: Yes (Other)
  Sender: FDA-Public Use
  Company Number: CN-JNJFOC-20200815571

PATIENT

DRUGS (2)
  1. RIVAROXABAN [Suspect]
     Active Substance: RIVAROXABAN
     Indication: PRODUCT USED FOR UNKNOWN INDICATION
     Dosage: UNK
     Route: 048
  2. RIVAROXABAN [Suspect]
     Active Substance: RIVAROXABAN
     Dosage: UNK
     Route: 048
     Dates: start: 2020

REACTIONS (4)
  - Incorrect dose administered [Unknown]
  - Traumatic fracture [Unknown]
  - Fall [Unknown]
  - Product packaging issue [Unknown]

NARRATIVE: CASE EVENT DATE: 2020
